FAERS Safety Report 12005115 (Version 2)
Quarter: 2016Q2

REPORT INFORMATION
  Report Type: Spontaneous
  Country: FR (occurrence: FR)
  Receive Date: 20160204
  Receipt Date: 20160413
  Transmission Date: 20160815
  Serious: Yes (Hospitalization)
  Sender: FDA-Public Use
  Company Number: FR-JNJFOC-20160122223

PATIENT
  Age: 80 Year
  Sex: Male

DRUGS (12)
  1. REMICADE [Suspect]
     Active Substance: INFLIXIMAB
     Indication: PSORIASIS
     Dosage: 13TH CYCLE OF INFLIXIMAB
     Route: 042
     Dates: start: 20151023
  2. TADENAN [Concomitant]
     Active Substance: PYGEUM
     Route: 065
  3. REMICADE [Suspect]
     Active Substance: INFLIXIMAB
     Indication: PSORIASIS
     Route: 042
     Dates: start: 20131210
  4. NABUCOX [Suspect]
     Active Substance: NABUMETONE
     Indication: PRODUCT USED FOR UNKNOWN INDICATION
     Dosage: FROM THE FIRST UNTIL THE 10TH DAY OF THE MONTH
     Route: 048
     Dates: start: 201507, end: 20151231
  5. REMICADE [Suspect]
     Active Substance: INFLIXIMAB
     Indication: PSORIASIS
     Route: 042
     Dates: start: 201506
  6. METOJECT [Suspect]
     Active Substance: METHOTREXATE SODIUM
     Indication: PSORIASIS
     Route: 058
     Dates: start: 20140210
  7. METOJECT [Suspect]
     Active Substance: METHOTREXATE SODIUM
     Indication: PSORIASIS
     Dosage: DOSE DECREASED FROM 10 THEN 7,5 MG/WEEK
     Route: 058
     Dates: start: 20150326, end: 20150605
  8. CHIBRO-PROSCAR [Concomitant]
     Active Substance: FINASTERIDE
     Route: 065
  9. ADENURIC [Suspect]
     Active Substance: FEBUXOSTAT
     Indication: PRODUCT USED FOR UNKNOWN INDICATION
     Route: 048
     Dates: start: 2013, end: 20151231
  10. LASILIX [Concomitant]
     Active Substance: FUROSEMIDE
     Route: 065
  11. MONOTILDIEM [Concomitant]
     Active Substance: DILTIAZEM
     Route: 065
  12. COVERSYL [Suspect]
     Active Substance: PERINDOPRIL
     Indication: HYPERTENSION
     Route: 048
     Dates: start: 201507, end: 20151231

REACTIONS (4)
  - Renal failure [Unknown]
  - Hypersensitivity vasculitis [Unknown]
  - Vascular purpura [Recovered/Resolved]
  - Glomerulonephropathy [Unknown]

NARRATIVE: CASE EVENT DATE: 20151204
